FAERS Safety Report 12537868 (Version 1)
Quarter: 2016Q3

REPORT INFORMATION
  Report Type: Spontaneous
  Country: US (occurrence: US)
  Receive Date: 20160707
  Receipt Date: 20160707
  Transmission Date: 20161109
  Serious: Yes (Other)
  Sender: FDA-Public Use
  Company Number: US-DSJP-DSU-2015-120131

PATIENT
  Sex: Female
  Weight: 77.98 kg

DRUGS (1)
  1. BENICAR HCT [Suspect]
     Active Substance: HYDROCHLOROTHIAZIDE\OLMESARTAN MEDOXOMIL
     Indication: HYPERTENSION
     Dosage: 40/25 MG, QD
     Dates: start: 2005, end: 2014

REACTIONS (8)
  - Haemorrhoids [Unknown]
  - Hepatomegaly [Unknown]
  - Renal failure [Unknown]
  - Malabsorption [Not Recovered/Not Resolved]
  - Steatohepatitis [Unknown]
  - Irritable bowel syndrome [Unknown]
  - Biliary dilatation [Unknown]
  - Liver disorder [Unknown]

NARRATIVE: CASE EVENT DATE: 2006
